FAERS Safety Report 9887868 (Version 1)
Quarter: 2013Q4

REPORT INFORMATION
  Report Type: Spontaneous
  Country: US (occurrence: None)
  Receive Date: 20131223
  Receipt Date: 20131223
  Transmission Date: 20140711
  Serious: Yes (Other)
  Sender: FDA-Public Use
  Company Number: 221354

PATIENT
  Age: 72 Year
  Sex: Male

DRUGS (1)
  1. PICATO (0.015%, GEL) [Suspect]
     Indication: ACTINIC KERATOSIS
     Route: 061
     Dates: start: 20130417, end: 20130419

REACTIONS (6)
  - Application site reaction [None]
  - Skin tightness [None]
  - Application site vesicles [None]
  - Application site pain [None]
  - Application site erythema [None]
  - Accidental exposure to product [None]
